FAERS Safety Report 9844330 (Version 3)
Quarter: 2014Q2

REPORT INFORMATION
  Report Type: Spontaneous
  Country: NL (occurrence: NL)
  Receive Date: 20140127
  Receipt Date: 20140505
  Transmission Date: 20141212
  Serious: Yes (Hospitalization, Other)
  Sender: FDA-Public Use
  Company Number: NL-AMGEN-NLDSP2014004870

PATIENT
  Age: 68 Year
  Sex: Female

DRUGS (1)
  1. ARANESP [Suspect]
     Indication: PRODUCT USED FOR UNKNOWN INDICATION
     Dosage: 30 MUG, QWK
     Route: 042
     Dates: end: 20130902

REACTIONS (4)
  - Cerebellar infarction [Unknown]
  - Nephrogenic anaemia [Unknown]
  - Haemoglobin abnormal [Unknown]
  - Asthenia [Unknown]
